FAERS Safety Report 4866017-8 (Version None)
Quarter: 2005Q4

REPORT INFORMATION
  Report Type: 
  Country: None (occurrence: None)
  Receive Date: 20051221
  Receipt Date: 20051212
  Transmission Date: 20060501
  Serious: No
  Sender: FDA-Public Use
  Company Number: 2005-135805-NL

PATIENT
  Age: 58 Year
  Sex: Female

DRUGS (8)
  1. MIRTAZAPINE [Suspect]
     Route: 048
  2. LEVOTHYROXINE SODIUM [Concomitant]
  3. VALPROATE SODIUM [Concomitant]
  4. BROMAZEPAM [Concomitant]
  5. FISH OIL [Concomitant]
  6. COLLAGEN [Concomitant]
  7. CALCIUM WITH VITAMIN D [Concomitant]
  8. VITAMIN B COMPLEX CAP [Concomitant]

REACTIONS (3)
  - CONVULSION [None]
  - HYPOAESTHESIA [None]
  - RASH ERYTHEMATOUS [None]
